FAERS Safety Report 5470806-9 (Version None)
Quarter: 2007Q3

REPORT INFORMATION
  Report Type: 
  Country: None (occurrence: None)
  Receive Date: 20070820
  Receipt Date: 20070423
  Transmission Date: 20080115
  Serious: No
  Sender: FDA-Public Use
  Company Number: WAES 0704USA05148

PATIENT
  Age: 55 Year
  Sex: Male

DRUGS (6)
  1. JANUVIA [Suspect]
     Indication: DIABETES MELLITUS
     Dosage: 100 MG/DAILY/PO
     Route: 048
     Dates: start: 20061219, end: 20061219
  2. AVAPRO [Concomitant]
  3. CADUET [Concomitant]
  4. MAVIK [Concomitant]
  5. TRICOR [Concomitant]
  6. METFORMIN HCL [Concomitant]

REACTIONS (1)
  - URTICARIA [None]
